FAERS Safety Report 7118587-7 (Version None)
Quarter: 2010Q4

REPORT INFORMATION
  Report Type: 
  Country: None (occurrence: None)
  Receive Date: 20101123
  Receipt Date: 20100204
  Transmission Date: 20110411
  Serious: No
  Sender: FDA-Public Use
  Company Number: US-MYLANLABS-2010S1001801

PATIENT
  Age: 62 Year
  Sex: Female
  Weight: 104.33 kg

DRUGS (1)
  1. NADOLOL [Suspect]
     Indication: VARICES OESOPHAGEAL
     Route: 048
     Dates: start: 20100125, end: 20100128

REACTIONS (4)
  - DIARRHOEA [None]
  - EPISTAXIS [None]
  - HEADACHE [None]
  - MALAISE [None]
